FAERS Safety Report 19738513 (Version 1)
Quarter: 2021Q3

REPORT INFORMATION
  Report Type: Spontaneous
  Country: US (occurrence: US)
  Receive Date: 20210823
  Receipt Date: 20210823
  Transmission Date: 20211014
  Serious: Yes (Hospitalization, Other)
  Sender: FDA-Public Use
  Company Number: None

PATIENT
  Age: 75 Year
  Sex: Male
  Weight: 39.18 kg

DRUGS (13)
  1. TOCILIZUMAB. [Suspect]
     Active Substance: TOCILIZUMAB
     Indication: COVID-19
     Route: 042
  2. HEPARIN [Concomitant]
     Active Substance: HEPARIN SODIUM
  3. PANTOPRAZOLE [Concomitant]
     Active Substance: PANTOPRAZOLE
  4. ATORVASTATIN [Concomitant]
     Active Substance: ATORVASTATIN
  5. SODIUM PHOSPHATE [Concomitant]
     Active Substance: SODIUM PHOSPHATE
  6. POTASSIUM [Concomitant]
     Active Substance: POTASSIUM
  7. INSULIN [Concomitant]
     Active Substance: INSULIN NOS
  8. LIDOCAINE. [Concomitant]
     Active Substance: LIDOCAINE
  9. DEXAMETHASONE. [Concomitant]
     Active Substance: DEXAMETHASONE
  10. TAMSULOSIN [Concomitant]
     Active Substance: TAMSULOSIN
  11. CEFTRIAXONE. [Concomitant]
     Active Substance: CEFTRIAXONE
  12. AZITHROMYCIN ANHYDROUS. [Concomitant]
     Active Substance: AZITHROMYCIN ANHYDROUS
  13. ENOXAPARIN [Concomitant]
     Active Substance: ENOXAPARIN

REACTIONS (1)
  - Bronchopulmonary aspergillosis [None]
